FAERS Safety Report 15311545 (Version 1)
Quarter: 2018Q3

REPORT INFORMATION
  Report Type: Spontaneous
  Country: US (occurrence: US)
  Receive Date: 20180823
  Receipt Date: 20180823
  Transmission Date: 20181010
  Serious: No
  Sender: FDA-Public Use
  Company Number: US-009507513-1808USA009693

PATIENT
  Age: 8 Month
  Sex: Male

DRUGS (1)
  1. TRUSOPT [Suspect]
     Active Substance: DORZOLAMIDE HYDROCHLORIDE
     Indication: RETINOSCHISIS
     Dosage: UNSPECIFIED DOSAGE IN RIGHT EYE, TWICE PER DAY
     Route: 047

REACTIONS (1)
  - Off label use [Unknown]
